FAERS Safety Report 13841806 (Version 1)
Quarter: 2017Q3

REPORT INFORMATION
  Report Type: Report from Study
  Country: US (occurrence: US)
  Receive Date: 20170807
  Receipt Date: 20170807
  Transmission Date: 20171127
  Serious: No
  Sender: FDA-Public Use
  Company Number: US-AMGEN-USASL2017008084

PATIENT
  Sex: Female

DRUGS (2)
  1. NPLATE [Suspect]
     Active Substance: ROMIPLOSTIM
     Indication: IMMUNE THROMBOCYTOPENIC PURPURA
     Dosage: 599 MUG, QWK
     Route: 065
  2. PREDNISONE. [Suspect]
     Active Substance: PREDNISONE
     Indication: PRODUCT USED FOR UNKNOWN INDICATION
     Dosage: UNK
     Route: 065

REACTIONS (12)
  - Immune system disorder [Unknown]
  - Peripheral swelling [Unknown]
  - Headache [Unknown]
  - Nasopharyngitis [Unknown]
  - Swelling face [Unknown]
  - Injection site pain [Unknown]
  - Vertigo [Unknown]
  - Arthralgia [Unknown]
  - Feeling hot [Unknown]
  - Wrong technique in product usage process [Unknown]
  - Platelet count decreased [Unknown]
  - Contusion [Unknown]
